FAERS Safety Report 5016379-6 (Version None)
Quarter: 2006Q2

REPORT INFORMATION
  Report Type: 
  Country: None (occurrence: None)
  Receive Date: 20060420
  Receipt Date: 20060304
  Transmission Date: 20061013
  Serious: No
  Sender: FDA-Public Use
  Company Number: 2006034875

PATIENT
  Age: 71 Year
  Sex: Male
  Weight: 81.6475 kg

DRUGS (3)
  1. SOMAVERT [Suspect]
     Indication: ACROMEGALY
     Dosage: 10 MG (10 MG,DAILY INTERVAL: EVERY DAY),SUBCUTANEOUS
     Route: 058
     Dates: start: 20060302
  2. SINEMET [Concomitant]
  3. CO-ENZYME Q-10/LECITHIN/LEMON BIOFLAVONOIDS/QUERCETIN (BIOFLAVONOIDS, [Concomitant]

REACTIONS (3)
  - CONSTIPATION [None]
  - FAECES DISCOLOURED [None]
  - MUCOUS STOOLS [None]
